FAERS Safety Report 14902973 (Version 1)
Quarter: 2018Q2

REPORT INFORMATION
  Report Type: Spontaneous
  Country: US (occurrence: US)
  Receive Date: 20180516
  Receipt Date: 20180516
  Transmission Date: 20180711
  Serious: No
  Sender: FDA-Public Use
  Company Number: US-SA-2017SA102234

PATIENT
  Age: 71 Year
  Sex: Female

DRUGS (2)
  1. SOLOSTAR [Suspect]
     Active Substance: DEVICE
     Indication: DIABETES MELLITUS
  2. LANTUS SOLOSTAR [Suspect]
     Active Substance: INSULIN GLARGINE
     Indication: DIABETES MELLITUS
     Dosage: DAILY DOSE: 15-20 UNITS IN THE ARM, 12 UNITS IN THE PM?START DATE: COUPLE OF YEARS
     Route: 058

REACTIONS (3)
  - Device issue [Unknown]
  - Product use issue [Unknown]
  - Blood glucose increased [Unknown]
